FAERS Safety Report 22229998 (Version 1)
Quarter: 2023Q2

REPORT INFORMATION
  Report Type: Spontaneous
  Country: US (occurrence: US)
  Receive Date: 20230419
  Receipt Date: 20230419
  Transmission Date: 20230722
  Serious: No
  Sender: FDA-Public Use
  Company Number: US-MYLANLABS-2023M1031423

PATIENT
  Sex: Female
  Weight: 77.11 kg

DRUGS (1)
  1. ESTRADIOL TRANSDERMAL SYSTEM [Suspect]
     Active Substance: ESTRADIOL
     Indication: Postmenopause
     Dosage: 0.037 MILLIGRAM, QD (ONCE-WEEKLY)
     Route: 062

REACTIONS (4)
  - Application site pruritus [Recovering/Resolving]
  - Application site erythema [Recovering/Resolving]
  - Application site erosion [Recovering/Resolving]
  - Product dose omission issue [Recovering/Resolving]
